FAERS Safety Report 25472932 (Version 1)
Quarter: 2025Q2

REPORT INFORMATION
  Report Type: Spontaneous
  Country: US (occurrence: None)
  Receive Date: 20250623
  Receipt Date: 20250623
  Transmission Date: 20250716
  Serious: Yes (Life-Threatening, Other)
  Sender: FDA-CTU
  Company Number: None

PATIENT
  Age: 68 Year
  Sex: Male
  Weight: 72.9 kg

DRUGS (1)
  1. BUPRENORPHINE HYDROCHLORIDE\NALOXONE [Suspect]
     Active Substance: BUPRENORPHINE HYDROCHLORIDE\NALOXONE
     Indication: Drug use disorder
     Dosage: FREQUENCY : DAILY;?
     Route: 060
     Dates: start: 20250619, end: 20250620

REACTIONS (6)
  - Illness [None]
  - Hypopnoea [None]
  - Headache [None]
  - Head discomfort [None]
  - Dizziness [None]
  - Fall [None]

NARRATIVE: CASE EVENT DATE: 20250619
